FAERS Safety Report 12257793 (Version 1)
Quarter: 2016Q2

REPORT INFORMATION
  Report Type: Spontaneous
  Country: FR (occurrence: FR)
  Receive Date: 20160412
  Receipt Date: 20160412
  Transmission Date: 20160815
  Serious: Yes (Hospitalization)
  Sender: FDA-Public Use
  Company Number: FR-SA-2016SA071517

PATIENT
  Age: 92 Year
  Sex: Male

DRUGS (14)
  1. IKOREL [Suspect]
     Active Substance: NICORANDIL
     Route: 048
     Dates: end: 20160312
  2. RISORDAN [Suspect]
     Active Substance: ISOSORBIDE DINITRATE
     Indication: ARTERIOGRAM CORONARY
     Dosage: ROUTE: ICO
     Dates: start: 20160310, end: 20160310
  3. CARDENSIEL [Suspect]
     Active Substance: BISOPROLOL FUMARATE
     Dosage: F ILM COATED DIV ISIBLE TABLET
     Route: 048
     Dates: end: 20160313
  4. MOPRAL [Suspect]
     Active Substance: OMEPRAZOLE SODIUM
     Route: 048
     Dates: end: 20160313
  5. ZYLORIC [Suspect]
     Active Substance: ALLOPURINOL
     Route: 048
     Dates: end: 20160314
  6. ISOPTINE [Suspect]
     Active Substance: VERAPAMIL HYDROCHLORIDE
     Indication: ARTERIOGRAM CORONARY
     Route: 042
     Dates: start: 20160310, end: 20160310
  7. LASILIX [Concomitant]
     Active Substance: FUROSEMIDE
  8. IRBESARTAN. [Concomitant]
     Active Substance: IRBESARTAN
  9. KARDEGIC [Concomitant]
     Active Substance: ASPIRIN LYSINE
  10. CORVASAL [Suspect]
     Active Substance: LINSIDOMINE
     Route: 048
     Dates: start: 20160311, end: 20160312
  11. PLAVIX [Suspect]
     Active Substance: CLOPIDOGREL BISULFATE
     Indication: ARTERIOGRAM CORONARY
     Route: 048
     Dates: start: 20160309, end: 20160309
  12. HEPARIN [Suspect]
     Active Substance: HEPARIN SODIUM
     Indication: ARTERIOGRAM CORONARY
     Dosage: ROUTE: ICO
     Dates: start: 20160310, end: 20160310
  13. OPTIRAY [Suspect]
     Active Substance: IOVERSOL
     Indication: ARTERIOGRAM CORONARY
     Route: 042
     Dates: start: 20160310, end: 20160310
  14. XYZALL [Concomitant]
     Active Substance: LEVOCETIRIZINE DIHYDROCHLORIDE
     Dates: start: 20160311

REACTIONS (2)
  - Eosinophilia [Recovered/Resolved]
  - Stevens-Johnson syndrome [Recovering/Resolving]

NARRATIVE: CASE EVENT DATE: 20160311
